FAERS Safety Report 10880924 (Version 1)
Quarter: 2015Q1

REPORT INFORMATION
  Report Type: Spontaneous
  Country: US (occurrence: None)
  Receive Date: 20150225
  Receipt Date: 20150225
  Transmission Date: 20150721
  Serious: Yes (Other)
  Sender: FDA-Public Use
  Company Number: None

PATIENT
  Age: 65 Year
  Sex: Female
  Weight: 72.58 kg

DRUGS (7)
  1. METHOTREXATE [Concomitant]
     Active Substance: METHOTREXATE
  2. ENBREL [Suspect]
     Active Substance: ETANERCEPT
     Indication: RHEUMATOID ARTHRITIS
     Dosage: ONE SYRINGE
     Route: 058
  3. LEUCOVORIN [Concomitant]
     Active Substance: LEUCOVORIN
  4. BIOTIN [Concomitant]
     Active Substance: BIOTIN
  5. METFORMIN [Concomitant]
     Active Substance: METFORMIN HYDROCHLORIDE
  6. CENTRUM [Concomitant]
     Active Substance: VITAMINS
  7. SYNTHROID [Concomitant]
     Active Substance: LEVOTHYROXINE SODIUM

REACTIONS (6)
  - Swelling [None]
  - Abasia [None]
  - Insomnia [None]
  - Back pain [None]
  - Pain [None]
  - Rheumatoid arthritis [None]

NARRATIVE: CASE EVENT DATE: 20120201
